FAERS Safety Report 9315490 (Version 1)
Quarter: 2013Q2

REPORT INFORMATION
  Report Type: Report from Study
  Country: HK (occurrence: HK)
  Receive Date: 20130529
  Receipt Date: 20130529
  Transmission Date: 20140414
  Serious: Yes (Hospitalization)
  Sender: FDA-Public Use
  Company Number: HK-ROCHE-1225935

PATIENT
  Age: 40 Year
  Sex: Female
  Weight: 56.4 kg

DRUGS (8)
  1. TRASTUZUMAB [Suspect]
     Indication: HER-2 POSITIVE BREAST CANCER
     Dosage: LOADING DOSE AS PER PROTOCOL.
     Route: 042
     Dates: start: 20130327, end: 20130327
  2. TRASTUZUMAB [Suspect]
     Dosage: START DATE OF MAINTENANCE DOSE ESTIMATED AS PER PROTOCOL AND FREQUENCY. THE LAST DOSE PRIOR TO THE E
     Route: 042
     Dates: start: 20130417
  3. DOCETAXEL [Suspect]
     Indication: HER-2 POSITIVE BREAST CANCER
     Dosage: THE LAST DOSE PRIOR TO THE EVENT WAS ON 08/MAY/2013.
     Route: 042
     Dates: start: 20130327
  4. CARBOPLATIN [Suspect]
     Indication: HER-2 POSITIVE BREAST CANCER
     Dosage: THE LAST DOSE PRIOR TO THE EVENT WAS ON 08/MAY/2013.
     Route: 042
     Dates: start: 20130327
  5. TRAMADOL HCL [Concomitant]
     Route: 065
     Dates: start: 20130507
  6. HYPROMELLOSE EYE DROPS [Concomitant]
     Dosage: DOSE FORM = DROPS.
     Route: 065
     Dates: start: 20130426
  7. PERTUZUMAB [Suspect]
     Indication: HER-2 POSITIVE BREAST CANCER
     Dosage: LOADING DOSE AS PER PROTOCOL.
     Route: 042
     Dates: start: 20130327, end: 20130327
  8. PERTUZUMAB [Suspect]
     Dosage: START DATE OF MAINTENANCE DOSE ESTIMATED AS PER PROTOCOL AND FREQUENCY. THE LAST DOSE PRIOR TO THE E
     Route: 042
     Dates: start: 20130417

REACTIONS (1)
  - Depression [Recovered/Resolved]
